APPROVED DRUG PRODUCT: ACHROMYCIN
Active Ingredient: TETRACYCLINE HYDROCHLORIDE
Strength: 500MG/VIAL
Dosage Form/Route: INJECTABLE;INJECTION
Application: N050273 | Product #003
Applicant: LEDERLE LABORATORIES DIV AMERICAN CYANAMID CO
Approved: Approved Prior to Jan 1, 1982 | RLD: No | RS: No | Type: DISCN